FAERS Safety Report 21674193 (Version 3)
Quarter: 2022Q4

REPORT INFORMATION
  Report Type: Report from Study
  Country: US (occurrence: US)
  Receive Date: 20221202
  Receipt Date: 20221208
  Transmission Date: 20230112
  Serious: Yes (Death)
  Sender: FDA-Public Use
  Company Number: US-002147023-NVSC2022US280209

PATIENT
  Sex: Male
  Weight: 72 kg

DRUGS (1)
  1. TABRECTA [Suspect]
     Active Substance: CAPMATINIB
     Indication: Lung carcinoma cell type unspecified stage IV
     Dosage: 200 MG, QD
     Route: 048
     Dates: start: 20220520

REACTIONS (2)
  - Lung carcinoma cell type unspecified stage IV [Fatal]
  - Malignant neoplasm progression [Fatal]
